FAERS Safety Report 23343441 (Version 6)
Quarter: 2025Q3

REPORT INFORMATION
  Report Type: Spontaneous
  Country: US (occurrence: US)
  Receive Date: 20231227
  Receipt Date: 20250903
  Transmission Date: 20251021
  Serious: Yes (Hospitalization, Other)
  Sender: PFIZER
  Company Number: US-PFIZER INC-PV202300207387

PATIENT
  Age: 77 Year
  Sex: Female
  Weight: 64.399 kg

DRUGS (12)
  1. XELJANZ XR [Suspect]
     Active Substance: TOFACITINIB CITRATE
     Indication: Arthritis
     Dosage: 11 MG, 1X/DAY
     Route: 048
     Dates: start: 20230905
  2. XELJANZ XR [Suspect]
     Active Substance: TOFACITINIB CITRATE
     Indication: Rheumatoid arthritis
     Dosage: YEARS AGO AND I CAN^T THINK OF THE MILLIGRAM, BUT IT WAS TWICE A DAY
  3. XELJANZ XR [Suspect]
     Active Substance: TOFACITINIB CITRATE
     Dosage: 11 MG, DAILY
     Route: 048
     Dates: start: 20230905
  4. ALBUTEROL [Concomitant]
     Active Substance: ALBUTEROL
  5. AMLODIPINE BESYLATE [Concomitant]
     Active Substance: AMLODIPINE BESYLATE
  6. ELIQUIS [Concomitant]
     Active Substance: APIXABAN
  7. FOLIC ACID [Concomitant]
     Active Substance: FOLIC ACID
  8. LOSARTAN [Concomitant]
     Active Substance: LOSARTAN
  9. METOPROLOL [Concomitant]
     Active Substance: METOPROLOL
  10. POTASSIUM [Concomitant]
     Active Substance: POTASSIUM
  11. ROSUVASTATIN [Concomitant]
     Active Substance: ROSUVASTATIN
  12. VIT D [VITAMIN D NOS] [Concomitant]

REACTIONS (7)
  - Atrial fibrillation [Recovering/Resolving]
  - Pneumonia [Unknown]
  - Off label use [Unknown]
  - Illness [Unknown]
  - Haemoglobin decreased [Unknown]
  - Constipation [Unknown]
  - Cystitis [Unknown]

NARRATIVE: CASE EVENT DATE: 20230101
